FAERS Safety Report 16482186 (Version 1)
Quarter: 2019Q2

REPORT INFORMATION
  Report Type: Spontaneous
  Country: ES (occurrence: ES)
  Receive Date: 20190627
  Receipt Date: 20190627
  Transmission Date: 20190711
  Serious: Yes (Hospitalization)
  Sender: FDA-Public Use
  Company Number: ES-TEVA-2019-ES-1069158

PATIENT
  Age: 56 Year
  Sex: Male

DRUGS (6)
  1. RISPERIDONA (7201A) [Suspect]
     Active Substance: RISPERIDONE
     Indication: SCHIZOPHRENIA
     Dosage: .25 MILLIGRAM DAILY;
     Route: 048
     Dates: start: 20180907, end: 20190516
  2. REPAGLINIDE. [Suspect]
     Active Substance: REPAGLINIDE
     Indication: DIABETES MELLITUS
     Route: 048
     Dates: start: 20190222, end: 20190516
  3. TRAJENTA 5 MG COMPRIMIDOS RECUBIERTOS CON PELICULA, 30 COMPRIMIDOS [Suspect]
     Active Substance: LINAGLIPTIN
     Indication: DIABETES MELLITUS
     Dosage: 5 MILLIGRAM DAILY;
     Route: 048
     Dates: start: 20180907, end: 20190516
  4. FUROSEMIDA (1615A) [Concomitant]
     Active Substance: FUROSEMIDE
     Dosage: 40 MILLIGRAM DAILY;
     Route: 048
     Dates: start: 20180721
  5. INVEGA [Concomitant]
     Active Substance: PALIPERIDONE
     Dosage: 3 MILLIGRAM DAILY;
     Route: 048
     Dates: start: 20190314
  6. BRINTELLIX [Suspect]
     Active Substance: VORTIOXETINE HYDROBROMIDE
     Indication: SCHIZOPHRENIA
     Route: 048
     Dates: start: 20190425, end: 20190516

REACTIONS (1)
  - Pemphigoid [Recovering/Resolving]

NARRATIVE: CASE EVENT DATE: 20190506
